FAERS Safety Report 7425749-8 (Version None)
Quarter: 2011Q2

REPORT INFORMATION
  Report Type: 
  Country: None (occurrence: None)
  Receive Date: 20110420
  Receipt Date: 20110411
  Transmission Date: 20111010
  Serious: Yes (Other)
  Sender: FDA-Public Use
  Company Number: JP-BRISTOL-MYERS SQUIBB COMPANY-15625122

PATIENT
  Age: 1 Day
  Sex: Male
  Weight: 2 kg

DRUGS (2)
  1. ABILIFY [Suspect]
     Route: 064
     Dates: end: 20110111
  2. MENTAX [Concomitant]
     Dosage: MENTAX CREAM

REACTIONS (3)
  - SMALL FOR DATES BABY [None]
  - FOETAL HEART RATE DISORDER [None]
  - UMBILICAL CORD AROUND NECK [None]
